FAERS Safety Report 6483966-8 (Version None)
Quarter: 2009Q4

REPORT INFORMATION
  Report Type: 
  Country: None (occurrence: None)
  Receive Date: 20091209
  Receipt Date: 20091127
  Transmission Date: 20100525
  Serious: Yes (Other)
  Sender: FDA-Public Use
  Company Number: CN-WYE-G04632409

PATIENT
  Sex: Male
  Weight: 77 kg

DRUGS (7)
  1. MOROCTOCOG ALFA AF OSA [Suspect]
     Indication: FACTOR VIII DEFICIENCY
     Dosage: 3549.0IU GIVEN FOR INITIAL RECOVERY
     Route: 040
     Dates: start: 20090408, end: 20090408
  2. MOROCTOCOG ALFA AF OSA [Suspect]
     Dosage: 1014.0IU PER TIME ON DEMAND
     Route: 040
     Dates: start: 20090529, end: 20090529
  3. MOROCTOCOG ALFA AF OSA [Suspect]
     Dosage: 1014.0IU PER TIME ON DEMAND
     Route: 040
     Dates: start: 20090808, end: 20090808
  4. MOROCTOCOG ALFA AF OSA [Suspect]
     Dosage: 1014.0IU PER TIME ON DEMAND
     Route: 040
     Dates: start: 20090813, end: 20090813
  5. MOROCTOCOG ALFA AF OSA [Suspect]
     Dosage: 2028.0IU PER TIME ON DEMAND
     Route: 040
     Dates: start: 20090922, end: 20090922
  6. MOROCTOCOG ALFA AF OSA [Suspect]
     Dosage: 1521.0IU PER TIME ON DEMAND
     Route: 040
     Dates: start: 20090923, end: 20090923
  7. MOROCTOCOG ALFA AF OSA [Suspect]
     Dosage: 3549.0IU GIVEN FOR FINAL RECOVERY
     Route: 040
     Dates: start: 20091008, end: 20091008

REACTIONS (1)
  - FACTOR VIII INHIBITION [None]
